FAERS Safety Report 5324420-6 (Version None)
Quarter: 2007Q2

REPORT INFORMATION
  Report Type: 
  Country: None (occurrence: None)
  Receive Date: 20070514
  Receipt Date: 20070510
  Transmission Date: 20071010
  Serious: Yes (Hospitalization)
  Sender: FDA-Public Use
  Company Number: GB-MERCK-0705GBR00039

PATIENT
  Age: 70 Year
  Sex: Female

DRUGS (6)
  1. COZAAR [Suspect]
     Indication: HYPERTENSION
     Route: 048
     Dates: end: 20070413
  2. METFORMIN [Suspect]
     Indication: DIABETES MELLITUS
     Route: 048
     Dates: end: 20070413
  3. BENDROFLUMETHIAZIDE [Concomitant]
     Indication: BLOOD PRESSURE INCREASED
     Route: 048
     Dates: end: 20070413
  4. INSULIN ASPART, BIPHASIC ISOPHANE [INJECTION] [Concomitant]
     Indication: DIABETES MELLITUS
     Route: 058
  5. PROPRANOLOL HYDROCHLORIDE [Concomitant]
     Indication: HYPERTENSION
     Route: 048
  6. SIMVASTATIN [Concomitant]
     Route: 048

REACTIONS (3)
  - DEHYDRATION [None]
  - DIARRHOEA [None]
  - RENAL FAILURE ACUTE [None]
